FAERS Safety Report 21017982 (Version 1)
Quarter: 2022Q2

REPORT INFORMATION
  Report Type: Spontaneous
  Country: US (occurrence: US)
  Receive Date: 20220628
  Receipt Date: 20220628
  Transmission Date: 20220721
  Serious: No
  Sender: FDA-Public Use
  Company Number: US-PFIZER INC-202200896228

PATIENT
  Age: 66 Year
  Sex: Female

DRUGS (5)
  1. PAXLOVID [Suspect]
     Active Substance: NIRMATRELVIR\RITONAVIR
     Indication: COVID-19 treatment
     Dosage: UNK
     Dates: start: 20220611, end: 20220616
  2. ZINC [Concomitant]
     Active Substance: ZINC
     Dosage: UNK
     Dates: start: 20220610, end: 20220612
  3. OLEA EUROPAEA LEAF [Concomitant]
     Active Substance: OLEA EUROPAEA LEAF
     Dosage: UNK
     Dates: start: 20220610, end: 20220625
  4. ANACIN [PHENAZONE] [Concomitant]
     Dosage: UNK
     Dates: start: 20220610, end: 20220614
  5. ANACIN [PHENAZONE] [Concomitant]
     Dosage: UNK
     Dates: start: 20220624, end: 20220625

REACTIONS (7)
  - Oropharyngeal pain [Not Recovered/Not Resolved]
  - Pain [Not Recovered/Not Resolved]
  - Feeling abnormal [Not Recovered/Not Resolved]
  - Apathy [Not Recovered/Not Resolved]
  - Fatigue [Not Recovered/Not Resolved]
  - Respiratory tract congestion [Not Recovered/Not Resolved]
  - Dyspnoea [Not Recovered/Not Resolved]

NARRATIVE: CASE EVENT DATE: 20220601
